FAERS Safety Report 5289836-5 (Version None)
Quarter: 2007Q2

REPORT INFORMATION
  Report Type: 
  Country: None (occurrence: None)
  Receive Date: 20070406
  Receipt Date: 20070323
  Transmission Date: 20071010
  Serious: Yes (Other)
  Sender: FDA-Public Use
  Company Number: GR-JNJFOC-20070306112

PATIENT
  Age: 40 Year
  Sex: Female
  Weight: 54 kg

DRUGS (3)
  1. REMICADE [Suspect]
     Route: 042
  2. REMICADE [Suspect]
     Indication: CROHN'S DISEASE
     Route: 042
  3. SOLOFALK [Concomitant]
     Indication: CROHN'S DISEASE
     Route: 048

REACTIONS (4)
  - EYE OEDEMA [None]
  - EYELID OEDEMA [None]
  - PRURITUS [None]
  - RASH [None]
